FAERS Safety Report 4287479-3 (Version None)
Quarter: 2004Q1

REPORT INFORMATION
  Report Type: 
  Country: None (occurrence: None)
  Receive Date: 20040209
  Receipt Date: 20030622
  Transmission Date: 20041129
  Serious: No
  Sender: FDA-Public Use
  Company Number: US-GLAXOSMITHKLINE-A0415630A

PATIENT
  Sex: Male

DRUGS (1)
  1. PAXIL CR [Suspect]

REACTIONS (1)
  - DRUG EFFECT DECREASED [None]
